FAERS Safety Report 14990171 (Version 1)
Quarter: 2018Q2

REPORT INFORMATION
  Report Type: Spontaneous
  Country: US (occurrence: US)
  Receive Date: 20180608
  Receipt Date: 20180608
  Transmission Date: 20180711
  Serious: No
  Sender: FDA-Public Use
  Company Number: US-ROCHE-2048263

PATIENT
  Sex: Female
  Weight: 56.75 kg

DRUGS (2)
  1. ACTEMRA [Suspect]
     Active Substance: TOCILIZUMAB
     Indication: RHEUMATOID ARTHRITIS
     Route: 058
     Dates: start: 201711
  2. PREDNISONE. [Concomitant]
     Active Substance: PREDNISONE
     Dosage: ONGOING:YES; INTERVAL: 1 DAY
     Route: 065

REACTIONS (4)
  - No adverse event [Unknown]
  - Accidental exposure to product [Unknown]
  - Drug dose omission [Unknown]
  - Wrong technique in product usage process [Unknown]
